FAERS Safety Report 9905393 (Version 1)
Quarter: 2014Q1

REPORT INFORMATION
  Report Type: Spontaneous
  Country: US (occurrence: US)
  Receive Date: 20140218
  Receipt Date: 20140218
  Transmission Date: 20141002
  Serious: No
  Sender: FDA-Public Use
  Company Number: US-TEVA-458888USA

PATIENT
  Age: 50 Year
  Sex: Female
  Weight: 81.72 kg

DRUGS (4)
  1. NUVIGIL [Suspect]
     Indication: SLEEP APNOEA SYNDROME
     Dosage: 250 MILLIGRAM DAILY;
     Route: 048
     Dates: start: 201312
  2. LITHIUM [Concomitant]
     Indication: BIPOLAR DISORDER
  3. GEODON [Concomitant]
     Indication: BIPOLAR DISORDER
  4. KLONOPIN [Concomitant]
     Indication: BIPOLAR DISORDER

REACTIONS (2)
  - Drug effect incomplete [Not Recovered/Not Resolved]
  - Drug prescribing error [Not Recovered/Not Resolved]
